FAERS Safety Report 14045479 (Version 1)
Quarter: 2017Q4

REPORT INFORMATION
  Report Type: Spontaneous
  Country: US (occurrence: US)
  Receive Date: 20171005
  Receipt Date: 20171005
  Transmission Date: 20180321
  Serious: No
  Sender: FDA-Public Use
  Company Number: US-INDIVIOR LIMITED-INDV-103002-2017

PATIENT
  Sex: Male

DRUGS (1)
  1. SUBOXONE [Suspect]
     Active Substance: BUPRENORPHINE HYDROCHLORIDE\NALOXONE HYDROCHLORIDE
     Indication: PRODUCT USED FOR UNKNOWN INDICATION
     Dosage: 2 MG, BID
     Route: 060
     Dates: start: 20170515

REACTIONS (7)
  - Decreased appetite [Unknown]
  - Product use issue [Unknown]
  - Tremor [Unknown]
  - Weight decreased [Unknown]
  - Feeling abnormal [Unknown]
  - Hypertension [Unknown]
  - Intentional underdose [Unknown]

NARRATIVE: CASE EVENT DATE: 20170515
